FAERS Safety Report 12473269 (Version 2)
Quarter: 2016Q3

REPORT INFORMATION
  Report Type: Spontaneous
  Country: CH (occurrence: CH)
  Receive Date: 20160616
  Receipt Date: 20160707
  Transmission Date: 20161109
  Serious: Yes (Other)
  Sender: FDA-Public Use
  Company Number: CH-NORTHSTAR HEALTHCARE HOLDINGS-CH-2016NSR001405

PATIENT

DRUGS (6)
  1. TRAMADOL HYDROCHLORIDE. [Suspect]
     Active Substance: TRAMADOL HYDROCHLORIDE
     Indication: ANALGESIC THERAPY
     Dosage: 50 MG, TID
  2. PARACETAMOL [Suspect]
     Active Substance: ACETAMINOPHEN
     Indication: ANALGESIC THERAPY
     Dosage: 1 G, TID
  3. TRAMADOL HYDROCHLORIDE. [Suspect]
     Active Substance: TRAMADOL HYDROCHLORIDE
     Indication: PAIN
     Dosage: 25 MG, TID (RESERVE DOSE)
  4. MORPHINE [Suspect]
     Active Substance: MORPHINE
     Indication: PAIN
  5. MORPHINE [Suspect]
     Active Substance: MORPHINE
     Indication: ANALGESIC THERAPY
     Dosage: UNK (EXTENDED-RELEASE)
  6. PARACETAMOL [Suspect]
     Active Substance: ACETAMINOPHEN
     Indication: PAIN

REACTIONS (5)
  - Hallucination, visual [Unknown]
  - Confusional state [Recovered/Resolved]
  - Somnolence [Unknown]
  - Sleep phase rhythm disturbance [Unknown]
  - Middle insomnia [Unknown]
